FAERS Safety Report 24371154 (Version 3)
Quarter: 2025Q1

REPORT INFORMATION
  Report Type: Spontaneous
  Country: FR (occurrence: FR)
  Receive Date: 20240927
  Receipt Date: 20250328
  Transmission Date: 20250409
  Serious: Yes (Life-Threatening, Hospitalization, Other)
  Sender: ABBVIE
  Company Number: None

PATIENT
  Age: 73 Year
  Sex: Female

DRUGS (1)
  1. BOTOX [Suspect]
     Active Substance: ONABOTULINUMTOXINA
     Indication: Skin wrinkling
     Route: 023
     Dates: start: 20240816, end: 20240816

REACTIONS (5)
  - Botulism [Not Recovered/Not Resolved]
  - Incorrect route of product administration [Recovered/Resolved]
  - Intentional product misuse [Unknown]
  - Tracheostomy [Unknown]
  - Amnesia [Unknown]

NARRATIVE: CASE EVENT DATE: 20240816
